FAERS Safety Report 25625936 (Version 4)
Quarter: 2025Q4

REPORT INFORMATION
  Report Type: Spontaneous
  Country: US (occurrence: US)
  Receive Date: 20250731
  Receipt Date: 20251126
  Transmission Date: 20260118
  Serious: Yes (Other)
  Sender: AMNEAL
  Company Number: US-AMNEAL PHARMACEUTICALS-2025-AMRX-01989

PATIENT
  Sex: Female

DRUGS (2)
  1. FLUOROMETHOLONE [Suspect]
     Active Substance: FLUOROMETHOLONE
     Indication: Prophylaxis against transplant rejection
     Dosage: 1 /DAY (1 DROP PER EVENING)
     Route: 047
     Dates: start: 20240625
  2. FLUOROMETHOLONE [Suspect]
     Active Substance: FLUOROMETHOLONE
     Dosage: 1 /DAY (1 DROP PER EVENING)
     Route: 047
     Dates: start: 20250214, end: 202505

REACTIONS (4)
  - Foreign body in eye [Recovered/Resolved]
  - Eye irritation [Recovered/Resolved]
  - Vision blurred [Recovered/Resolved]
  - Product substitution issue [Unknown]
